FAERS Safety Report 8399220-3 (Version None)
Quarter: 2012Q2

REPORT INFORMATION
  Report Type: 
  Country: None (occurrence: None)
  Receive Date: 20120525
  Receipt Date: 20120521
  Transmission Date: 20120825
  Serious: Yes (Other)
  Sender: FDA-Public Use
  Company Number: 2012050125

PATIENT
  Age: 37 Year
  Sex: Male
  Weight: 83.0083 kg

DRUGS (3)
  1. ROWASA [Suspect]
     Indication: COLITIS ULCERATIVE
     Dosage: 1 APPLICATION (DOSE) (AT NIGHT)
     Dates: start: 20120201
  2. REMICADE [Suspect]
     Indication: COLITIS ULCERATIVE
     Dosage: IV
     Route: 042
     Dates: start: 20070401, end: 20120101
  3. MULTIVITAMINS (VITAMINS, MINERALS) [Concomitant]

REACTIONS (6)
  - CENTRAL NERVOUS SYSTEM LESION [None]
  - PARAESTHESIA [None]
  - VERTIGO [None]
  - DIPLOPIA [None]
  - DEAFNESS UNILATERAL [None]
  - VITAMIN D DECREASED [None]
